FAERS Safety Report 7735070-6 (Version None)
Quarter: 2011Q3

REPORT INFORMATION
  Report Type: 
  Country: None (occurrence: None)
  Receive Date: 20110907
  Receipt Date: 20110829
  Transmission Date: 20111222
  Serious: Yes (Death, Other)
  Sender: FDA-Public Use
  Company Number: US-BAYER-2011-005531

PATIENT
  Age: 72 Year
  Sex: Male
  Weight: 63 kg

DRUGS (27)
  1. PHENYLEPHRINE HCL [Concomitant]
     Route: 042
  2. LASIX [Concomitant]
     Dosage: UNK
     Route: 042
     Dates: start: 20051026
  3. NITROGLYCERIN [Concomitant]
  4. HEPARIN [Concomitant]
     Dosage: UNK
     Route: 042
  5. PROPOFOL [Concomitant]
     Route: 042
  6. ZOSYN [Concomitant]
     Dosage: UNK
     Route: 042
     Dates: start: 20051027
  7. TRASYLOL [Suspect]
     Dosage: 50CC/HR
     Route: 042
     Dates: start: 20051023, end: 20051023
  8. LOPRESSOR [Concomitant]
  9. DOPAMINE HCL [Concomitant]
     Dosage: 400MG/250CC
     Route: 042
  10. RED BLOOD CELLS [Concomitant]
     Dosage: 1 U, UNK
     Dates: start: 20051023
  11. DILAUDID [Concomitant]
     Dosage: UNK
     Route: 042
     Dates: start: 20051024
  12. LEVAQUIN [Concomitant]
     Dosage: UNK
     Route: 042
     Dates: start: 20051027
  13. ATIVAN [Concomitant]
     Dosage: UNK
     Route: 042
     Dates: start: 20051030
  14. VANCOMYCIN [Concomitant]
     Route: 042
  15. SUFENTANIL CITRATE [Concomitant]
     Route: 042
  16. PHENYLEPHRINE [PHENYLEPHRINE] [Concomitant]
     Dosage: UNK
     Route: 042
  17. PLATELETS [Concomitant]
     Dosage: 275 ML, UNK
     Route: 042
     Dates: start: 20051023
  18. MANNITOL [Concomitant]
     Route: 042
  19. MIDAZOLAM HCL [Concomitant]
     Route: 042
  20. MILRINONE [Concomitant]
     Dosage: 20MG/100CC
     Route: 042
  21. TRASYLOL [Suspect]
     Indication: CORONARY ARTERY BYPASS
     Dosage: 200CC
     Route: 042
     Dates: start: 20051023, end: 20051023
  22. PROTAMINE [Concomitant]
     Route: 042
  23. HYDRALAZINE HCL [Concomitant]
     Dosage: UNK
     Route: 042
     Dates: start: 20051025
  24. NITROGLYCERIN [Concomitant]
     Dosage: 50MG/250CC
     Route: 042
  25. LIDOCAINE [Concomitant]
     Dosage: UNK
     Route: 042
  26. PANCURONIUM [Concomitant]
     Route: 042
  27. INSULIN [Concomitant]

REACTIONS (25)
  - MYOCARDIAL INFARCTION [None]
  - ANHEDONIA [None]
  - CORONARY ARTERY DISEASE [None]
  - ARTERIOSCLEROSIS CORONARY ARTERY [None]
  - SHOCK [None]
  - PAIN [None]
  - UNEVALUABLE EVENT [None]
  - RENAL INJURY [None]
  - INJURY [None]
  - DISABILITY [None]
  - DEATH [None]
  - STRESS [None]
  - ANXIETY [None]
  - RENAL IMPAIRMENT [None]
  - FEAR OF DEATH [None]
  - NERVOUSNESS [None]
  - ISCHAEMIC STROKE [None]
  - RENAL FAILURE [None]
  - CARDIAC FAILURE [None]
  - DEPRESSION [None]
  - MULTI-ORGAN FAILURE [None]
  - RENAL DISORDER [None]
  - EMOTIONAL DISTRESS [None]
  - FEAR [None]
  - PSYCHIATRIC SYMPTOM [None]
